FAERS Safety Report 16674371 (Version 1)
Quarter: 2019Q3

REPORT INFORMATION
  Report Type: Spontaneous
  Country: US (occurrence: US)
  Receive Date: 20190806
  Receipt Date: 20190806
  Transmission Date: 20191004
  Serious: No
  Sender: FDA-Public Use
  Company Number: US-INCYTE CORPORATION-2019IN007835

PATIENT

DRUGS (1)
  1. JAKAFI [Suspect]
     Active Substance: RUXOLITINIB
     Indication: POLYCYTHAEMIA VERA
     Dosage: 15 MG (3 5 MILLIGRAMS) QAM, 10 MG (2 5 MILLIGRAM) QPM
     Route: 048
     Dates: start: 20190521

REACTIONS (1)
  - Hepatic enzyme increased [Unknown]
